FAERS Safety Report 21077257 (Version 1)
Quarter: 2022Q3

REPORT INFORMATION
  Report Type: Spontaneous
  Country: US (occurrence: US)
  Receive Date: 20220713
  Receipt Date: 20220713
  Transmission Date: 20221027
  Serious: No
  Sender: FDA-Public Use
  Company Number: US-BRISTOL-MYERS SQUIBB COMPANY-2022-071436

PATIENT
  Age: 38 Year
  Sex: Female

DRUGS (2)
  1. ZEPOSIA [Suspect]
     Active Substance: OZANIMOD HYDROCHLORIDE
     Indication: Hepatitis viral
     Route: 048
     Dates: start: 20220630
  2. STELARA [Concomitant]
     Active Substance: USTEKINUMAB
     Indication: Product used for unknown indication
     Route: 065

REACTIONS (4)
  - Fatigue [Unknown]
  - Rash [Unknown]
  - Pain in extremity [Unknown]
  - Intentional product use issue [Unknown]
